FAERS Safety Report 20583694 (Version 1)
Quarter: 2022Q1

REPORT INFORMATION
  Report Type: Spontaneous
  Country: US (occurrence: US)
  Receive Date: 20220311
  Receipt Date: 20220311
  Transmission Date: 20220424
  Serious: No
  Sender: FDA-Public Use
  Company Number: US-SA-SAC20220307002038

PATIENT

DRUGS (1)
  1. TAXOTERE [Suspect]
     Active Substance: DOCETAXEL
     Dosage: UNK
     Dates: start: 20120803, end: 20121005

REACTIONS (8)
  - Injury [Unknown]
  - Deformity [Unknown]
  - Anxiety [Unknown]
  - Emotional distress [Unknown]
  - Discomfort [Unknown]
  - Impaired quality of life [Unknown]
  - Alopecia [Unknown]
  - Pain [Unknown]
